FAERS Safety Report 8158483-X (Version None)
Quarter: 2012Q1

REPORT INFORMATION
  Report Type: 
  Country: None (occurrence: None)
  Receive Date: 20120223
  Receipt Date: 20120220
  Transmission Date: 20120608
  Serious: No
  Sender: FDA-Public Use
  Company Number: US-PFIZER INC-2012045500

PATIENT
  Sex: Female
  Weight: 90.703 kg

DRUGS (5)
  1. CHANTIX [Suspect]
     Indication: SMOKING CESSATION THERAPY
     Dosage: 0.5 MG, DAILY
     Route: 048
     Dates: start: 20120201, end: 20120201
  2. CARBATROL [Concomitant]
     Indication: BIPOLAR DISORDER
     Dosage: 200 MG, 2X/DAY
  3. CHANTIX [Suspect]
     Dosage: 0.5 MG, UNK
     Route: 048
     Dates: start: 20120201, end: 20120201
  4. LITHIUM [Concomitant]
     Indication: BIPOLAR DISORDER
     Dosage: 450 MG, 4X/DAY
  5. XANAX [Concomitant]
     Indication: BIPOLAR DISORDER
     Dosage: 0.25 MG, 4X/DAY

REACTIONS (5)
  - OROPHARYNGEAL PAIN [None]
  - HEADACHE [None]
  - DRUG INEFFECTIVE [None]
  - FEELING JITTERY [None]
  - TOBACCO USER [None]
